FAERS Safety Report 4365992-8 (Version None)
Quarter: 2004Q2

REPORT INFORMATION
  Report Type: 
  Country: None (occurrence: None)
  Receive Date: 20040520
  Receipt Date: 20040512
  Transmission Date: 20050107
  Serious: Yes (Hospitalization, Other)
  Sender: FDA-Public Use
  Company Number: GB-JNJFOC-20040502583

PATIENT
  Age: 48 Year
  Sex: Male

DRUGS (2)
  1. TRAMADOL HCL [Suspect]
     Indication: PAIN
     Dosage: 100 MG, 1 IN 1 DAY, INTRAVENOUS
     Route: 042
     Dates: start: 20040408, end: 20040408
  2. COX 2 (ANALGESICS [Concomitant]

REACTIONS (4)
  - DYSARTHRIA [None]
  - DYSPHEMIA [None]
  - MYOCLONUS [None]
  - POST PROCEDURAL COMPLICATION [None]
